FAERS Safety Report 21029990 (Version 1)
Quarter: 2022Q3

REPORT INFORMATION
  Report Type: Spontaneous
  Country: US (occurrence: None)
  Receive Date: 20220701
  Receipt Date: 20220701
  Transmission Date: 20221027
  Serious: No
  Sender: FDA-Public Use
  Company Number: US-ROCHE-2842861

PATIENT
  Age: 60 Year
  Sex: Female
  Weight: 90.800 kg

DRUGS (2)
  1. ACTEMRA [Suspect]
     Active Substance: TOCILIZUMAB
     Indication: Giant cell arteritis
     Dosage: 162 MG SUBCUTANEOUS IN EVERY 7 DAYS
     Route: 058
     Dates: start: 202104
  2. ACTEMRA [Suspect]
     Active Substance: TOCILIZUMAB

REACTIONS (3)
  - Device malfunction [Unknown]
  - Exposure via skin contact [Unknown]
  - Contusion [Unknown]

NARRATIVE: CASE EVENT DATE: 20210526
